FAERS Safety Report 5853466-4 (Version None)
Quarter: 2008Q3

REPORT INFORMATION
  Report Type: 
  Country: None (occurrence: None)
  Receive Date: 20080820
  Receipt Date: 20080811
  Transmission Date: 20090109
  Serious: Yes (Other)
  Sender: FDA-Public Use
  Company Number: 2008AP001987

PATIENT
  Age: 86 Year
  Sex: Female

DRUGS (13)
  1. ALENDRONATE SODIUM [Suspect]
     Indication: OSTEOPOROSIS PROPHYLAXIS
     Dosage: 70 MG, PO
     Route: 048
     Dates: start: 20080613
  2. CALCIUM CARBONATE (CALCIUM CARBONATE) [Concomitant]
  3. ACETYLSALICYLIC ACID SRT [Concomitant]
  4. CHLORPHENIRAMINE MALEATE [Concomitant]
  5. FUROSEMIDE (FUROSEMIDE) [Concomitant]
  6. LATANOPROST [Concomitant]
  7. LISINOPRIL [Concomitant]
  8. OMEPRAZOLE [Concomitant]
  9. PREDNISONE [Concomitant]
  10. TIMOLOL MALEATE [Concomitant]
  11. MEDRONIC ACID (MEDRONIC ACID) [Concomitant]
  12. VERAPAMIL HYDROCHLORIDE [Concomitant]
  13. STANNOUS FLUORIDE (STANNOUS FLUORIDE) [Concomitant]

REACTIONS (1)
  - ATRIAL FIBRILLATION [None]
